FAERS Safety Report 20597541 (Version 2)
Quarter: 2022Q1

REPORT INFORMATION
  Report Type: Report from Study
  Country: FR (occurrence: FR)
  Receive Date: 20220315
  Receipt Date: 20220330
  Transmission Date: 20220423
  Serious: Yes (Hospitalization)
  Sender: FDA-Public Use
  Company Number: FR-ROCHE-2867694

PATIENT
  Age: 46 Year
  Sex: Female

DRUGS (3)
  1. CISPLATIN [Suspect]
     Active Substance: CISPLATIN
     Indication: Cervix carcinoma
     Dosage: 73 MILLIGRAM, QW(73 MG ON 20/MAY/2021 FOR A CUMULATIVE DOSE BEFORE EVENT ONSET OF 368 MG)
     Route: 042
     Dates: start: 20210421
  2. ATEZOLIZUMAB [Suspect]
     Active Substance: ATEZOLIZUMAB
     Indication: Cervix carcinoma
     Dosage: 1200 MILLIGRAM,Q3W(MOST RECENT DOSE ATEZOLIZUMAB PRIOR (1200 MG) TO SAE ONSET 07/10/21 3600 MG
     Route: 042
     Dates: start: 20210421
  3. FOLIC ACID [Concomitant]
     Active Substance: FOLIC ACID
     Dosage: 5 MILLIGRAM, QD (FOR FOUR MONTHS)

REACTIONS (3)
  - Thyroiditis [Recovered/Resolved with Sequelae]
  - General physical health deterioration [Recovered/Resolved with Sequelae]
  - Anaemia [Recovered/Resolved]

NARRATIVE: CASE EVENT DATE: 20210705
